FAERS Safety Report 22325438 (Version 1)
Quarter: 2023Q2

REPORT INFORMATION
  Report Type: Spontaneous
  Country: GB (occurrence: GB)
  Receive Date: 20230516
  Receipt Date: 20230516
  Transmission Date: 20230722
  Serious: Yes (Death, Life-Threatening, Hospitalization, Disabling, Other)
  Sender: FDA-Public Use
  Company Number: None

PATIENT
  Age: 27 Year
  Sex: Female

DRUGS (2)
  1. OMEPRAZOLE [Suspect]
     Active Substance: OMEPRAZOLE
     Indication: Renal failure
     Dosage: UNK
  2. TACROLIMUS [Suspect]
     Active Substance: TACROLIMUS
     Indication: Kidney transplant rejection
     Dosage: UNKNOWN FREQ.
     Route: 042

REACTIONS (8)
  - Acidosis [Fatal]
  - Blood calcium decreased [Fatal]
  - Drug interaction [Fatal]
  - Circulatory collapse [Fatal]
  - Blood magnesium decreased [Fatal]
  - Renal impairment [Fatal]
  - Brain oedema [Fatal]
  - Incorrect dose administered [Fatal]

NARRATIVE: CASE EVENT DATE: 20161001
